FAERS Safety Report 19221801 (Version 1)
Quarter: 2021Q2

REPORT INFORMATION
  Report Type: Spontaneous
  Country: US (occurrence: US)
  Receive Date: 20210505
  Receipt Date: 20210505
  Transmission Date: 20210717
  Serious: Yes (Hospitalization)
  Sender: FDA-Public Use
  Company Number: None

PATIENT
  Age: 59 Year
  Sex: Male
  Weight: 96.75 kg

DRUGS (22)
  1. FLUCONAZOLE. [Concomitant]
     Active Substance: FLUCONAZOLE
  2. ATORVASTATIN [Concomitant]
     Active Substance: ATORVASTATIN
  3. FOLIC ACID. [Concomitant]
     Active Substance: FOLIC ACID
  4. IRON [Concomitant]
     Active Substance: IRON
  5. LANTUS [Concomitant]
     Active Substance: INSULIN GLARGINE
  6. METFORMIN [Concomitant]
     Active Substance: METFORMIN HYDROCHLORIDE
  7. ELIQUIS [Concomitant]
     Active Substance: APIXABAN
  8. LOVAZA [Concomitant]
     Active Substance: OMEGA-3-ACID ETHYL ESTERS
  9. BACLOFEN. [Concomitant]
     Active Substance: BACLOFEN
  10. DOXYCYCLINE. [Concomitant]
     Active Substance: DOXYCYCLINE
  11. METOPROLOL. [Concomitant]
     Active Substance: METOPROLOL
  12. TRAZODONE [Concomitant]
     Active Substance: TRAZODONE HYDROCHLORIDE
  13. PROMACTA [Suspect]
     Active Substance: ELTROMBOPAG OLAMINE
     Indication: IMMUNE THROMBOCYTOPENIA
     Route: 048
     Dates: start: 20200813
  14. LOSARTAN. [Concomitant]
     Active Substance: LOSARTAN
  15. MAGNESIUM [Concomitant]
     Active Substance: MAGNESIUM
  16. SENNACOT [Concomitant]
  17. FUROSEMIDE. [Concomitant]
     Active Substance: FUROSEMIDE
  18. GABAPENTIN. [Concomitant]
     Active Substance: GABAPENTIN
  19. HUMALOG [Concomitant]
     Active Substance: INSULIN LISPRO
  20. LEVOTHYROXINE. [Concomitant]
     Active Substance: LEVOTHYROXINE
  21. MULTIVITAMIN [Concomitant]
     Active Substance: VITAMINS
  22. OMEPRAZOLE. [Concomitant]
     Active Substance: OMEPRAZOLE

REACTIONS (2)
  - Localised infection [None]
  - Post procedural infection [None]

NARRATIVE: CASE EVENT DATE: 20210505
